FAERS Safety Report 19160867 (Version 1)
Quarter: 2021Q2

REPORT INFORMATION
  Report Type: Spontaneous
  Country: TR (occurrence: TR)
  Receive Date: 20210421
  Receipt Date: 20210421
  Transmission Date: 20210717
  Serious: Yes (Hospitalization, Other)
  Sender: FDA-Public Use
  Company Number: TR-LUPIN PHARMACEUTICALS INC.-2021-04937

PATIENT
  Age: 44 Year
  Sex: Male

DRUGS (3)
  1. AMLODIPINE [Concomitant]
     Active Substance: AMLODIPINE BESYLATE
     Indication: HYPERTENSION
     Dosage: 5 MILLIGRAM, QD
     Route: 065
  2. DICLOFENAC [Suspect]
     Active Substance: DICLOFENAC
     Indication: GUILLAIN-BARRE SYNDROME
     Dosage: 50 MILLIGRAM, BID
     Route: 065
  3. GABAPENTIN. [Concomitant]
     Active Substance: GABAPENTIN
     Indication: GUILLAIN-BARRE SYNDROME
     Dosage: 600 MILLIGRAM, TID TAKEN THREE TIMES A DAY
     Route: 065

REACTIONS (3)
  - Oliguria [Recovering/Resolving]
  - Tubulointerstitial nephritis [Recovering/Resolving]
  - Metabolic acidosis [Recovering/Resolving]
